FAERS Safety Report 6752385-9 (Version None)
Quarter: 2010Q2

REPORT INFORMATION
  Report Type: 
  Country: None (occurrence: None)
  Receive Date: 20100602
  Receipt Date: 20100525
  Transmission Date: 20101027
  Serious: Yes (Hospitalization, Other)
  Sender: FDA-Public Use
  Company Number: US-MPIJNJ-2010-02402

PATIENT
  Sex: Female

DRUGS (11)
  1. VELCADE [Suspect]
     Indication: NEOPLASM
     Dosage: 1.0 MG/M2, CYCLIC
     Route: 042
     Dates: start: 20060424, end: 20060504
  2. GEMCITABINE HCL [Suspect]
     Indication: NEOPLASM
     Dosage: 1250 MG/M2, CYCLIC
     Route: 042
     Dates: start: 20060424, end: 20060501
  3. MORPHINE [Concomitant]
     Indication: DRUG USE FOR UNKNOWN INDICATION
  4. CELEBREX [Concomitant]
     Indication: DRUG USE FOR UNKNOWN INDICATION
     Dosage: 20 MG, BID
  5. METHADONE [Concomitant]
     Indication: DRUG USE FOR UNKNOWN INDICATION
     Dosage: 15 MG, UNK
  6. METHADONE [Concomitant]
     Dosage: 25 MG, UNK
  7. LYRICA [Concomitant]
     Indication: DRUG USE FOR UNKNOWN INDICATION
     Dosage: 50 MG, Q8HR
  8. LACTULOSE [Concomitant]
     Indication: DRUG USE FOR UNKNOWN INDICATION
     Dosage: UNK
  9. ZELNORM [Concomitant]
     Indication: DRUG USE FOR UNKNOWN INDICATION
     Dosage: 6 MG, BID
  10. COLACE [Concomitant]
     Indication: DRUG USE FOR UNKNOWN INDICATION
     Dosage: UNK
  11. PROVIGIL [Concomitant]
     Indication: DRUG USE FOR UNKNOWN INDICATION
     Dosage: 200 MG, UNK
     Route: 048

REACTIONS (1)
  - THROMBOSIS [None]
